FAERS Safety Report 5099172-8 (Version None)
Quarter: 2006Q3

REPORT INFORMATION
  Report Type: 
  Country: None (occurrence: None)
  Receive Date: 20060728
  Receipt Date: 20060623
  Transmission Date: 20061208
  Serious: No
  Sender: FDA-Public Use
  Company Number: COT_0610_2006

PATIENT
  Age: 36 Year
  Sex: Female
  Weight: 51.7101 kg

DRUGS (11)
  1. VENTAVIS [Suspect]
     Indication: PULMONARY HYPERTENSION
     Dosage: 5 MCG 6XD IH
     Route: 055
     Dates: start: 20050601
  2. DIGOXIN [Concomitant]
  3. POTASSIUM CHLORIDE [Concomitant]
  4. LASIX [Concomitant]
  5. MYCELEX [Concomitant]
  6. RESTASIS [Concomitant]
  7. TRACLEER [Concomitant]
  8. PLAQUENIL [Concomitant]
  9. COUMADIN [Concomitant]
  10. WELLBUTRIN [Concomitant]
  11. SILDENAFIL [Concomitant]

REACTIONS (1)
  - PAIN IN EXTREMITY [None]
